FAERS Safety Report 23717220 (Version 1)
Quarter: 2024Q2

REPORT INFORMATION
  Report Type: Spontaneous
  Country: US (occurrence: US)
  Receive Date: 20240408
  Receipt Date: 20240408
  Transmission Date: 20240716
  Serious: Yes (Hospitalization)
  Sender: FDA-Public Use
  Company Number: US-TEVA-VS-3175957

PATIENT
  Age: 65 Year
  Sex: Male

DRUGS (2)
  1. LIDOCAINE [Suspect]
     Active Substance: LIDOCAINE
     Indication: Arthralgia
     Dosage: LAST USED THE PATCH APPROXIMATELY 24MAR2024
     Route: 062
     Dates: end: 20240324
  2. LIDOCAINE [Suspect]
     Active Substance: LIDOCAINE
     Indication: Injury

REACTIONS (8)
  - Fall [Unknown]
  - Product adhesion issue [Unknown]
  - Product design issue [Unknown]
  - Product dose omission issue [Unknown]
  - Application site vesicles [Not Recovered/Not Resolved]
  - Application site scar [Unknown]
  - Skin laceration [Unknown]
  - Off label use [Unknown]

NARRATIVE: CASE EVENT DATE: 20240301
